FAERS Safety Report 21035272 (Version 1)
Quarter: 2022Q3

REPORT INFORMATION
  Report Type: Spontaneous
  Country: US (occurrence: None)
  Receive Date: 20220701
  Receipt Date: 20220701
  Transmission Date: 20221026
  Serious: Yes (Hospitalization)
  Sender: FDA-Public Use
  Company Number: None

PATIENT
  Age: 80 Year
  Sex: Female

DRUGS (13)
  1. LENALIDOMIDE [Suspect]
     Active Substance: LENALIDOMIDE
     Indication: Plasma cell myeloma
     Dosage: OTHER FREQUENCY : 14D ON 7OFF;?
     Route: 048
     Dates: end: 20220625
  2. ACYCLOVIR [Concomitant]
     Active Substance: ACYCLOVIR
  3. ASPIRIN [Concomitant]
     Active Substance: ASPIRIN
  4. BUPROPION [Concomitant]
     Active Substance: BUPROPION
  5. CRESTOR [Concomitant]
     Active Substance: ROSUVASTATIN CALCIUM
  6. DECADRON [Concomitant]
     Active Substance: DEXAMETHASONE
  7. METOPROLOL [Concomitant]
     Active Substance: METOPROLOL
  8. VITAMINS [Concomitant]
     Active Substance: VITAMINS
  9. NITROSTAT [Concomitant]
     Active Substance: NITROGLYCERIN
  10. PREDNISONE [Concomitant]
     Active Substance: PREDNISONE
  11. PROCHLORPERAZINE [Concomitant]
     Active Substance: PROCHLORPERAZINE
  12. VITAMIN D3 [Concomitant]
     Active Substance: CHOLECALCIFEROL
  13. ZOLOFT [Concomitant]
     Active Substance: SERTRALINE HYDROCHLORIDE

REACTIONS (2)
  - Myocardial infarction [None]
  - Pneumonia [None]

NARRATIVE: CASE EVENT DATE: 20220625
